FAERS Safety Report 26075692 (Version 1)
Quarter: 2025Q4

REPORT INFORMATION
  Report Type: Spontaneous
  Country: EU (occurrence: EU)
  Receive Date: 20251121
  Receipt Date: 20251121
  Transmission Date: 20260117
  Serious: Yes (Other)
  Sender: TEVA
  Company Number: None

PATIENT
  Age: 75 Year
  Sex: Female

DRUGS (4)
  1. FLUOROURACIL [Suspect]
     Active Substance: FLUOROURACIL
     Indication: Colon cancer
     Dosage: 1 G/20 ML; FLUOROURACIL TEVA FOR INTRAVENOUS INFUSION, ADMINISTERED DOSE: 1400 MG VIA ELASTOMERIC...
     Route: 042
     Dates: start: 20250915, end: 20250917
  2. FLUOROURACIL [Suspect]
     Active Substance: FLUOROURACIL
     Indication: Colon cancer
     Dosage: 1 G/20 ML; FLUOROURACIL TEVA
     Route: 042
     Dates: start: 20250915, end: 20250915
  3. IRINOTECAN [Suspect]
     Active Substance: IRINOTECAN
     Indication: Colon cancer
     Dosage: 20 MG/ML
     Route: 042
     Dates: start: 20250915, end: 20250915
  4. VECTIBIX [Suspect]
     Active Substance: PANITUMUMAB
     Indication: Colon cancer
     Dosage: 20 MG/ML
     Route: 042
     Dates: start: 20250915, end: 20250915

REACTIONS (1)
  - Neuropathy peripheral [Not Recovered/Not Resolved]

NARRATIVE: CASE EVENT DATE: 20250917
